FAERS Safety Report 18227913 (Version 1)
Quarter: 2020Q3

REPORT INFORMATION
  Report Type: Spontaneous
  Country: US (occurrence: US)
  Receive Date: 20200903
  Receipt Date: 20200903
  Transmission Date: 20201103
  Serious: Yes (Other)
  Sender: FDA-Public Use
  Company Number: None

PATIENT
  Age: 64 Year
  Sex: Male

DRUGS (1)
  1. SULFAMETHOXAZOLE AND TRIMETHOPRIM [Suspect]
     Active Substance: SULFAMETHOXAZOLE\TRIMETHOPRIM
     Route: 052
     Dates: start: 20200821, end: 20200827

REACTIONS (4)
  - Contraindicated product prescribed [None]
  - Product prescribing error [None]
  - Documented hypersensitivity to administered product [None]
  - Stevens-Johnson syndrome [None]

NARRATIVE: CASE EVENT DATE: 20200821
